FAERS Safety Report 7920561-5 (Version None)
Quarter: 2011Q4

REPORT INFORMATION
  Report Type: 
  Country: None (occurrence: None)
  Receive Date: 20111117
  Receipt Date: 20110811
  Transmission Date: 20120403
  Serious: No
  Sender: FDA-Public Use
  Company Number: US-BAYER-2011-074909

PATIENT
  Age: 30 Year
  Sex: Female

DRUGS (3)
  1. ALEVE (CAPLET) [Suspect]
     Indication: HEADACHE
     Dosage: UNK
     Route: 048
     Dates: start: 20080101
  2. CHOLESTEROL- AND TRIGLYCERIDE REDUCERS [Concomitant]
  3. CONTRACEPTIVES NOS [Concomitant]

REACTIONS (1)
  - DRUG SCREEN POSITIVE [None]
